FAERS Safety Report 11856715 (Version 1)
Quarter: 2015Q4

REPORT INFORMATION
  Report Type: Spontaneous
  Country: DK (occurrence: FR)
  Receive Date: 20151221
  Receipt Date: 20151221
  Transmission Date: 20160305
  Serious: Yes (Life-Threatening, Hospitalization)
  Sender: FDA-Public Use
  Company Number: FR-FRI-1000081821

PATIENT
  Age: 23 Year
  Sex: Female

DRUGS (4)
  1. LEXOMIL ROCHE [Suspect]
     Active Substance: BROMAZEPAM
     Indication: PARTNER STRESS
  2. ESCITALOPRAM [Suspect]
     Active Substance: ESCITALOPRAM OXALATE
     Indication: PARTNER STRESS
  3. LEXOMIL ROCHE [Suspect]
     Active Substance: BROMAZEPAM
     Indication: FEELING ABNORMAL
     Dosage: INTENTIONAL OVERDOSE OF 30 DF OF BROMAZEPAM.
     Route: 048
     Dates: start: 20150907, end: 20150907
  4. ESCITALOPRAM [Suspect]
     Active Substance: ESCITALOPRAM OXALATE
     Indication: FEELING ABNORMAL
     Dosage: INTENTIONAL OVERDOSE OF 220 MG OF ESCITRALOPRAM.
     Route: 048
     Dates: start: 20150907, end: 20150907

REACTIONS (3)
  - Toxicity to various agents [Recovered/Resolved]
  - Somnolence [Recovered/Resolved]
  - Intentional overdose [Recovered/Resolved]

NARRATIVE: CASE EVENT DATE: 20150907
